FAERS Safety Report 23154587 (Version 1)
Quarter: 2023Q4

REPORT INFORMATION
  Report Type: Spontaneous
  Country: NL (occurrence: NL)
  Receive Date: 20231107
  Receipt Date: 20231107
  Transmission Date: 20240110
  Serious: Yes (Hospitalization, Other)
  Sender: FDA-Public Use
  Company Number: NL-TAKEDA-2023TUS102808

PATIENT
  Age: 18 Year
  Sex: Female

DRUGS (31)
  1. METHYLPHENIDATE [Suspect]
     Active Substance: METHYLPHENIDATE
     Indication: Depression
     Dosage: UNK
     Route: 065
  2. METHYLPHENIDATE [Suspect]
     Active Substance: METHYLPHENIDATE
     Indication: Body mass index increased
  3. METHYLPHENIDATE [Suspect]
     Active Substance: METHYLPHENIDATE
     Indication: Anxiety
  4. METHYLPHENIDATE [Suspect]
     Active Substance: METHYLPHENIDATE
     Indication: Migraine
  5. METHYLPHENIDATE [Suspect]
     Active Substance: METHYLPHENIDATE
     Indication: Attention deficit hyperactivity disorder
  6. ONDANSETRON [Suspect]
     Active Substance: ONDANSETRON
     Indication: Product used for unknown indication
     Dosage: ORODISPERSIBLE FILM
     Route: 065
  7. TOPIRAMATE [Suspect]
     Active Substance: TOPIRAMATE
     Indication: Anxiety
     Dosage: UNK
     Route: 065
  8. TOPIRAMATE [Suspect]
     Active Substance: TOPIRAMATE
     Indication: Migraine
  9. TOPIRAMATE [Suspect]
     Active Substance: TOPIRAMATE
     Indication: Body mass index decreased
  10. TOPIRAMATE [Suspect]
     Active Substance: TOPIRAMATE
     Indication: Depression
  11. TOPIRAMATE [Suspect]
     Active Substance: TOPIRAMATE
     Indication: Attention deficit hyperactivity disorder
  12. RIZATRIPTAN [Suspect]
     Active Substance: RIZATRIPTAN
     Indication: Body mass index decreased
     Dosage: UNK
     Route: 065
  13. RIZATRIPTAN [Suspect]
     Active Substance: RIZATRIPTAN
     Indication: Anxiety
  14. RIZATRIPTAN [Suspect]
     Active Substance: RIZATRIPTAN
     Indication: Attention deficit hyperactivity disorder
  15. RIZATRIPTAN [Suspect]
     Active Substance: RIZATRIPTAN
     Indication: Migraine
  16. RIZATRIPTAN [Suspect]
     Active Substance: RIZATRIPTAN
     Indication: Depression
  17. HERBALS\TETRAHYDROCANNABINOL UNSPECIFIED [Suspect]
     Active Substance: HERBALS\TETRAHYDROCANNABINOL UNSPECIFIED
     Indication: Migraine
     Dosage: 200 MILLIGRAM
     Route: 048
  18. HERBALS\TETRAHYDROCANNABINOL UNSPECIFIED [Suspect]
     Active Substance: HERBALS\TETRAHYDROCANNABINOL UNSPECIFIED
     Indication: Anxiety
  19. HERBALS\TETRAHYDROCANNABINOL UNSPECIFIED [Suspect]
     Active Substance: HERBALS\TETRAHYDROCANNABINOL UNSPECIFIED
     Indication: Depression
  20. HERBALS\TETRAHYDROCANNABINOL UNSPECIFIED [Suspect]
     Active Substance: HERBALS\TETRAHYDROCANNABINOL UNSPECIFIED
     Indication: Attention deficit hyperactivity disorder
  21. HERBALS\TETRAHYDROCANNABINOL UNSPECIFIED [Suspect]
     Active Substance: HERBALS\TETRAHYDROCANNABINOL UNSPECIFIED
     Indication: Body mass index decreased
  22. DESVENLAFAXINE [Suspect]
     Active Substance: DESVENLAFAXINE
     Indication: Body mass index decreased
     Dosage: UNK
     Route: 065
  23. DESVENLAFAXINE [Suspect]
     Active Substance: DESVENLAFAXINE
     Indication: Migraine
  24. DESVENLAFAXINE [Suspect]
     Active Substance: DESVENLAFAXINE
     Indication: Depression
  25. DESVENLAFAXINE [Suspect]
     Active Substance: DESVENLAFAXINE
     Indication: Anxiety
  26. DESVENLAFAXINE [Suspect]
     Active Substance: DESVENLAFAXINE
     Indication: Attention deficit hyperactivity disorder
  27. METOCLOPRAMIDE [Suspect]
     Active Substance: METOCLOPRAMIDE
     Indication: Attention deficit hyperactivity disorder
     Dosage: UNK
     Route: 065
  28. METOCLOPRAMIDE [Suspect]
     Active Substance: METOCLOPRAMIDE
     Indication: Body mass index decreased
  29. METOCLOPRAMIDE [Suspect]
     Active Substance: METOCLOPRAMIDE
     Indication: Migraine
  30. METOCLOPRAMIDE [Suspect]
     Active Substance: METOCLOPRAMIDE
     Indication: Depression
  31. METOCLOPRAMIDE [Suspect]
     Active Substance: METOCLOPRAMIDE
     Indication: Anxiety

REACTIONS (2)
  - Serotonin syndrome [Recovered/Resolved]
  - Off label use [Unknown]
